FAERS Safety Report 25703883 (Version 1)
Quarter: 2025Q3

REPORT INFORMATION
  Report Type: Spontaneous
  Country: CN (occurrence: CN)
  Receive Date: 20250820
  Receipt Date: 20250820
  Transmission Date: 20251020
  Serious: Yes (Other)
  Sender: Kenvue
  Company Number: CN-KENVUE-20250805216

PATIENT

DRUGS (3)
  1. ACETAMINOPHEN [Suspect]
     Active Substance: ACETAMINOPHEN
     Indication: Pyrexia
     Dosage: 650.000 MILLIGRAM, THRICE A DAY
     Route: 048
     Dates: start: 20250714, end: 20250728
  2. CEFIXIME [Suspect]
     Active Substance: CEFIXIME
     Indication: Pyrexia
     Dosage: 0.1 GRAM, TWICE A DAY
     Route: 048
     Dates: start: 20250725, end: 20250728
  3. CEFIXIME [Suspect]
     Active Substance: CEFIXIME
     Indication: Anti-infective therapy

REACTIONS (1)
  - Dermatitis [Recovering/Resolving]

NARRATIVE: CASE EVENT DATE: 20250726
